FAERS Safety Report 7357277-2 (Version None)
Quarter: 2011Q1

REPORT INFORMATION
  Report Type: 
  Country: None (occurrence: None)
  Receive Date: 20110311
  Receipt Date: 20110311
  Transmission Date: 20110831
  Serious: Yes (Other)
  Sender: FDA-Public Use
  Company Number: None

PATIENT
  Age: 28 Year
  Sex: Female
  Weight: 58.9676 kg

DRUGS (1)
  1. MIRENA [Suspect]
     Indication: CONTRACEPTION
     Dosage: 52 MG CONTINUOUS INTRA-UTERINE
     Route: 015

REACTIONS (4)
  - DEVICE DISLOCATION [None]
  - SMEAR CERVIX ABNORMAL [None]
  - CERVIX DISORDER [None]
  - HAEMORRHAGE [None]
